FAERS Safety Report 23509390 (Version 2)
Quarter: 2024Q1

REPORT INFORMATION
  Report Type: Spontaneous
  Country: US (occurrence: US)
  Receive Date: 20240210
  Receipt Date: 20240216
  Transmission Date: 20240409
  Serious: No
  Sender: FDA-Public Use
  Company Number: US-MACLEODS PHARMACEUTICALS US LTD-MAC2024045692

PATIENT

DRUGS (1)
  1. TRIAMCINOLONE [Suspect]
     Active Substance: TRIAMCINOLONE
     Indication: Eczema
     Dosage: UNK UNK, BID (0.001)
     Route: 061
     Dates: start: 20240127, end: 20240129

REACTIONS (4)
  - Skin exfoliation [Unknown]
  - Drug ineffective [Unknown]
  - Product physical consistency issue [Unknown]
  - Product quality issue [Unknown]
